FAERS Safety Report 6922416-1 (Version None)
Quarter: 2010Q3

REPORT INFORMATION
  Report Type: 
  Country: None (occurrence: None)
  Receive Date: 20100813
  Receipt Date: 20100804
  Transmission Date: 20110219
  Serious: Yes (Hospitalization)
  Sender: FDA-Public Use
  Company Number: US-JNJFOC-20100801674

PATIENT
  Sex: Male
  Weight: 63.5 kg

DRUGS (3)
  1. RISPERDAL [Suspect]
     Indication: AUTISM
     Route: 048
  2. PREVACID [Concomitant]
     Indication: ULCER
     Route: 048
  3. LAMICTAL [Concomitant]
     Indication: CONVULSION
     Dosage: HALF TABLET 75 MG TWICE PER DAY
     Route: 048

REACTIONS (2)
  - EMOTIONAL DISORDER [None]
  - LARGE INTESTINE CARCINOMA [None]
